FAERS Safety Report 4764163-0 (Version None)
Quarter: 2005Q3

REPORT INFORMATION
  Report Type: 
  Country: None (occurrence: None)
  Receive Date: 20050906
  Receipt Date: 20050627
  Transmission Date: 20060218
  Serious: No
  Sender: FDA-Public Use
  Company Number: 2005-BP-10929BP

PATIENT
  Sex: Male

DRUGS (13)
  1. SPIRIVA [Suspect]
     Indication: CHRONIC OBSTRUCTIVE PULMONARY DISEASE
     Dosage: 18 MCG (18 MCG, QD), IH
     Route: 055
     Dates: start: 20050401
  2. ADVAIR DISKUS 100/50 [Suspect]
     Indication: CHRONIC OBSTRUCTIVE PULMONARY DISEASE
     Dosage: 1 PUFFS BID (NR), IH
     Route: 055
     Dates: start: 20050401
  3. LIPITOR [Concomitant]
  4. ATENOLOL [Concomitant]
  5. NORVASC [Concomitant]
  6. VITAMIN E [Concomitant]
  7. VITAMIN C (ASCORBIC ACID) [Concomitant]
  8. OMEGA 3 (FISH OIL) [Concomitant]
  9. FOLIC ACID [Concomitant]
  10. ACETYLSALICYLIC ACID SRT [Concomitant]
  11. VITAMIN B (VITAMIN B) [Concomitant]
  12. WATER PILL [Concomitant]
  13. LISINOPRIL [Concomitant]

REACTIONS (1)
  - RASH MACULAR [None]
